FAERS Safety Report 5177402-1 (Version None)
Quarter: 2006Q4

REPORT INFORMATION
  Report Type: 
  Country: None (occurrence: None)
  Receive Date: 20061207
  Receipt Date: 20061130
  Transmission Date: 20070319
  Serious: Yes (Hospitalization)
  Sender: FDA-Public Use
  Company Number: 2006148531

PATIENT
  Age: 43 Year
  Sex: Male

DRUGS (9)
  1. DOXORUBICIN HCL [Suspect]
     Dosage: (CYCLICAL)
  2. CYCLOPHOSPHAMIDE [Suspect]
     Dosage: (CYCLICAL)
  3. CYTARABINE [Suspect]
     Dosage: INTRATHECAL
     Route: 037
  4. METHOTREXATE [Suspect]
     Dosage: INTRATHECAL
     Route: 037
  5. PREDNISOLONE [Suspect]
     Indication: BURKITT'S LYMPHOMA
     Dosage: (CYCLICAL)
  6. HYDROCORTISONE SODIUM SUCCINATE [Suspect]
     Dosage: INTRATHECAL
     Route: 037
  7. RITONAVIR (RITONAVIR) [Concomitant]
  8. SAQUINAVIR (SAQUINAVIR) [Concomitant]
  9. VINCRISTINE [Concomitant]

REACTIONS (6)
  - BACK PAIN [None]
  - MULTIPLE FRACTURES [None]
  - OSTEONECROSIS [None]
  - OSTEOPOROSIS [None]
  - PAIN IN EXTREMITY [None]
  - SPINAL COMPRESSION FRACTURE [None]
